FAERS Safety Report 11942701 (Version 3)
Quarter: 2016Q1

REPORT INFORMATION
  Report Type: Report from Study
  Country: GB (occurrence: GB)
  Receive Date: 20160125
  Receipt Date: 20160316
  Transmission Date: 20160526
  Serious: Yes (Hospitalization)
  Sender: FDA-Public Use
  Company Number: GB-BEH-2016057992

PATIENT
  Age: 41 Year
  Sex: Female

DRUGS (5)
  1. CARBOPROST [Concomitant]
     Active Substance: CARBOPROST
     Dosage: INTO LEFT THIGH
     Route: 030
  2. RIASTAP [Suspect]
     Active Substance: FIBRINOGEN HUMAN
     Dosage: NUMBER OF IMP BOTTLES GIVEN: 3; ROUTE: INFUSION
  3. CARBOPROST [Concomitant]
     Active Substance: CARBOPROST
     Dosage: INTO LEFT THIGH
     Route: 030
  4. CARBOPROST [Concomitant]
     Active Substance: CARBOPROST
     Dosage: INTO LEFT THIGH
     Route: 030
  5. RIASTAP [Suspect]
     Active Substance: FIBRINOGEN HUMAN
     Indication: POSTPARTUM HAEMORRHAGE
     Dosage: ROUTE: INFUSION
     Dates: start: 20140209

REACTIONS (5)
  - Flat affect [Unknown]
  - Insomnia [Unknown]
  - Lactation disorder [Recovered/Resolved]
  - Oedema [Unknown]
  - Injection site extravasation [Unknown]

NARRATIVE: CASE EVENT DATE: 20140211
